FAERS Safety Report 24621573 (Version 1)
Quarter: 2024Q4

REPORT INFORMATION
  Report Type: Spontaneous
  Country: US (occurrence: US)
  Receive Date: 20241114
  Receipt Date: 20241114
  Transmission Date: 20250114
  Serious: No
  Sender: SANOFI AVENTIS
  Company Number: US-SANOFI-02285807

PATIENT
  Sex: Female

DRUGS (1)
  1. LANTUS [Suspect]
     Active Substance: INSULIN GLARGINE
     Indication: Diabetes mellitus
     Dosage: BID 54 U Q AM AND 50 U Q DINNER
     Route: 065

REACTIONS (3)
  - Product storage error [Unknown]
  - Product preparation error [Unknown]
  - Off label use [Unknown]
